FAERS Safety Report 8431989-1 (Version None)
Quarter: 2012Q2

REPORT INFORMATION
  Report Type: 
  Country: None (occurrence: None)
  Receive Date: 20120613
  Receipt Date: 20111108
  Transmission Date: 20120825
  Serious: No
  Sender: FDA-Public Use
  Company Number: US-ASTRAZENECA-2011SE68205

PATIENT

DRUGS (2)
  1. CRESTOR [Concomitant]
     Route: 048
  2. RHINOCORT [Suspect]
     Route: 045

REACTIONS (2)
  - HALLUCINATION [None]
  - DRUG HYPERSENSITIVITY [None]
